FAERS Safety Report 9440965 (Version 4)
Quarter: 2014Q1

REPORT INFORMATION
  Report Type: Spontaneous
  Country: GR (occurrence: GR)
  Receive Date: 20130805
  Receipt Date: 20140128
  Transmission Date: 20141002
  Serious: Yes (Other)
  Sender: FDA-Public Use
  Company Number: GR-009507513-1307GRC016267

PATIENT
  Age: 70 Year
  Sex: Female

DRUGS (7)
  1. JANUVIA [Suspect]
     Indication: TYPE 2 DIABETES MELLITUS
     Dosage: HALF OF 100 MG THE TABLET DAILY, (50 MG DAILY)
     Route: 048
     Dates: start: 201206, end: 20130724
  2. JANUVIA [Suspect]
     Dosage: HALF TABLET DAILY (50 MG)
     Route: 048
     Dates: start: 20130811, end: 20130821
  3. JANUVIA [Suspect]
     Dosage: 50 MG, QD (HALF OF 100MG TABLET)
     Route: 048
     Dates: start: 201309, end: 201311
  4. JANUVIA [Suspect]
     Dosage: 100 MG DAILY
     Route: 048
     Dates: start: 201311
  5. AERIUS [Concomitant]
     Indication: RHINITIS ALLERGIC
     Dosage: UNKNOWN
     Route: 048
  6. GLUCOPHAGE [Concomitant]
     Indication: TYPE 2 DIABETES MELLITUS
     Dosage: 850 MG, QD
     Route: 048
  7. FLIXOTIDE [Concomitant]
     Indication: NASAL POLYPS
     Dosage: UNKNOWN
     Route: 045

REACTIONS (6)
  - Surgery [Unknown]
  - Rhinitis allergic [Recovering/Resolving]
  - Rhinitis allergic [Recovering/Resolving]
  - Rhinitis allergic [Recovering/Resolving]
  - Rhinitis allergic [Not Recovered/Not Resolved]
  - Wrong technique in drug usage process [Unknown]
